FAERS Safety Report 11399879 (Version 1)
Quarter: 2015Q3

REPORT INFORMATION
  Report Type: Spontaneous
  Country: US (occurrence: None)
  Receive Date: 20150819
  Receipt Date: 20150819
  Transmission Date: 20151125
  Serious: Yes (Death)
  Sender: FDA-Public Use
  Company Number: None

PATIENT
  Age: 79 Year
  Sex: Male

DRUGS (1)
  1. GENGRAF [Suspect]
     Active Substance: CYCLOSPORINE
     Indication: ORGAN TRANSPLANT
     Dosage: EVERY 12 HOURS
     Route: 048
     Dates: start: 20140219, end: 20150721

REACTIONS (1)
  - Renal disorder [None]

NARRATIVE: CASE EVENT DATE: 20150812
